FAERS Safety Report 6615189-3 (Version None)
Quarter: 2010Q1

REPORT INFORMATION
  Report Type: 
  Country: None (occurrence: None)
  Receive Date: 20100305
  Receipt Date: 20100224
  Transmission Date: 20100710
  Serious: Yes (Hospitalization)
  Sender: FDA-Public Use
  Company Number: PHEH2010US00660

PATIENT
  Sex: Female
  Weight: 49.55 kg

DRUGS (2)
  1. EXJADE [Suspect]
     Indication: SICKLE CELL ANAEMIA
     Dosage: 1500 MG, QD
     Route: 048
     Dates: start: 20091120
  2. EXJADE [Suspect]
     Dosage: 500 MG, BID
     Route: 048

REACTIONS (2)
  - BRONCHITIS [None]
  - SICKLE CELL ANAEMIA WITH CRISIS [None]
